FAERS Safety Report 13368353 (Version 4)
Quarter: 2017Q3

REPORT INFORMATION
  Report Type: Report from Study
  Country: DE (occurrence: DE)
  Receive Date: 20170324
  Receipt Date: 20170803
  Transmission Date: 20171127
  Serious: Yes (Death, Other)
  Sender: FDA-Public Use
  Company Number: PHHY2017DE044083

PATIENT
  Sex: Female
  Weight: 68 kg

DRUGS (13)
  1. VOTRIENT [Suspect]
     Active Substance: PAZOPANIB HYDROCHLORIDE
     Dosage: 400 MG, QD
     Route: 048
     Dates: start: 20170106, end: 20170123
  2. SPIRONOLACTON RATIOPHARM [Concomitant]
     Active Substance: SPIRONOLACTONE
     Indication: PROPHYLAXIS
     Dosage: 12.5 MG, QD
     Route: 048
  3. VALSARTAN. [Concomitant]
     Active Substance: VALSARTAN
     Indication: HYPERTENSION
     Dosage: 320 MG, QD
     Route: 048
  4. NOVALGIN [Concomitant]
     Active Substance: METAMIZOLE SODIUM
     Indication: DIVERTICULUM INTESTINAL
     Dosage: 500 MG, BID
     Route: 048
  5. CLEXANE [Concomitant]
     Active Substance: ENOXAPARIN SODIUM
     Indication: PROPHYLAXIS
     Dosage: 0.4 ML, QD
     Route: 058
  6. TORASEMIDE [Concomitant]
     Active Substance: TORSEMIDE
     Indication: PROPHYLAXIS
     Dosage: 10 MG, QID
     Route: 048
     Dates: start: 20170105
  7. CLOPIDOGREL RATIOPHARM [Concomitant]
     Indication: PRODUCT USED FOR UNKNOWN INDICATION
     Dosage: 75 MG, QD
     Route: 048
  8. TOREM [Concomitant]
     Active Substance: TORSEMIDE
     Indication: HYPERTENSION
     Dosage: 5 MG, 5QD
     Route: 048
  9. XELEVIA [Concomitant]
     Active Substance: SITAGLIPTIN PHOSPHATE
     Indication: INSULIN-REQUIRING TYPE 2 DIABETES MELLITUS
     Dosage: 50 MG, QD
     Route: 048
  10. VOTRIENT [Suspect]
     Active Substance: PAZOPANIB HYDROCHLORIDE
     Indication: RENAL CELL CARCINOMA
     Dosage: 800 MG, QD
     Route: 048
     Dates: start: 20160831, end: 20161207
  11. SIMVASTATIN REAL [Concomitant]
     Active Substance: SIMVASTATIN
     Indication: HYPERTENSION
     Dosage: 40 MG, QD
     Route: 048
  12. METOPROLOL SUCCINAT BETA [Concomitant]
     Indication: HYPERTENSION
     Dosage: 47.5 MG, BID
     Route: 048
  13. AMLODIPIN RATIOPHARM [Concomitant]
     Indication: HYPERTENSION
     Dosage: 5 MG, BID
     Route: 048

REACTIONS (9)
  - Fatigue [Fatal]
  - Renal failure [Fatal]
  - Decreased appetite [Fatal]
  - Pruritus [Unknown]
  - Blood creatinine increased [Fatal]
  - Oedema peripheral [Fatal]
  - Sleep disorder [Unknown]
  - Dyspnoea [Fatal]
  - General physical health deterioration [Not Recovered/Not Resolved]

NARRATIVE: CASE EVENT DATE: 20161206
